FAERS Safety Report 22339432 (Version 6)
Quarter: 2024Q3

REPORT INFORMATION
  Report Type: Report from Study
  Country: US (occurrence: US)
  Receive Date: 20230518
  Receipt Date: 20240919
  Transmission Date: 20241017
  Serious: Yes (Hospitalization, Other)
  Sender: JAZZ
  Company Number: US-JAZZ PHARMACEUTICALS-2023-US-004888

PATIENT
  Age: 73 Year
  Sex: Female

DRUGS (7)
  1. XYWAV [Suspect]
     Active Substance: CALCIUM OXYBATE\MAGNESIUM OXYBATE\POTASSIUM OXYBATE\SODIUM OXYBATE
     Indication: Narcolepsy
     Dosage: UNK
  2. XYWAV [Suspect]
     Active Substance: CALCIUM OXYBATE\MAGNESIUM OXYBATE\POTASSIUM OXYBATE\SODIUM OXYBATE
     Indication: Somnolence
  3. MAGNESIUM LACTATE [Concomitant]
     Active Substance: MAGNESIUM LACTATE
     Indication: Cardiac disorder
     Dosage: SR 84 MG CPT
     Dates: start: 20221116
  4. AMLODIPINE BESYLATE [Concomitant]
     Active Substance: AMLODIPINE BESYLATE
     Indication: Product used for unknown indication
     Dosage: UNK
     Dates: start: 20230219
  5. CEPHALEXIN [Concomitant]
     Active Substance: CEPHALEXIN
     Indication: Product used for unknown indication
     Dosage: UNK
     Dates: start: 20231017
  6. PEPCID [Concomitant]
     Active Substance: FAMOTIDINE
     Indication: Product used for unknown indication
     Dosage: UNK
     Dates: start: 20240115
  7. BREO ELLIPTA [Concomitant]
     Active Substance: FLUTICASONE FUROATE\VILANTEROL TRIFENATATE
     Indication: Product used for unknown indication
     Dosage: UNK
     Dates: start: 20240317

REACTIONS (19)
  - Spinal compression fracture [Unknown]
  - Fall [Unknown]
  - Disability [Unknown]
  - Nerve compression [Unknown]
  - Cerebral haemorrhage [Unknown]
  - Chronic kidney disease [Unknown]
  - Fall [Unknown]
  - Craniocerebral injury [Unknown]
  - Visual impairment [Unknown]
  - Procedural complication [Unknown]
  - Head injury [Unknown]
  - Rib fracture [Unknown]
  - Back pain [Not Recovered/Not Resolved]
  - Blood cholesterol increased [Not Recovered/Not Resolved]
  - Hypertension [Recovering/Resolving]
  - Eye injury [Unknown]
  - Memory impairment [Unknown]
  - Nausea [Unknown]
  - Concussion [Unknown]

NARRATIVE: CASE EVENT DATE: 20230201
